FAERS Safety Report 4828184-1 (Version None)
Quarter: 2005Q4

REPORT INFORMATION
  Report Type: 
  Country: None (occurrence: None)
  Receive Date: 20051115
  Receipt Date: 20051111
  Transmission Date: 20060501
  Serious: Yes (Other)
  Sender: FDA-Public Use
  Company Number: US-GLAXOSMITHKLINE-A0581949A

PATIENT
  Age: 71 Year
  Sex: Female

DRUGS (4)
  1. ZOFRAN [Suspect]
     Indication: PROPHYLAXIS OF NAUSEA AND VOMITING
     Dosage: 32MG SINGLE DOSE
     Route: 042
  2. LEUCOVORIN [Concomitant]
  3. AVASTIN [Concomitant]
  4. DECADRON [Concomitant]

REACTIONS (2)
  - BACK PAIN [None]
  - HAEMOLYSIS [None]
